FAERS Safety Report 8711254 (Version 3)
Quarter: 2013Q2

REPORT INFORMATION
  Report Type: Report from Study
  Country: MX (occurrence: MX)
  Receive Date: 20120807
  Receipt Date: 20130506
  Transmission Date: 20140414
  Serious: Yes (Death, Other)
  Sender: FDA-Public Use
  Company Number: PHHY2012MX067616

PATIENT
  Age: 63 Year
  Sex: Female

DRUGS (5)
  1. GALVUS MET [Suspect]
     Dosage: 2 DF (METF 850 MG, VILD 50 MG)
  2. DIOVAN [Suspect]
     Indication: HYPERTENSION
     Dosage: 2 DF (160 MG), BY DAY
     Dates: start: 201207
  3. GALVUS [Concomitant]
     Indication: BLOOD GLUCOSE INCREASED
     Dosage: 1 DF (50 UNK), BID
     Dates: start: 201107
  4. AKSPRI [Concomitant]
     Indication: BLOOD GLUCOSE ABNORMAL
     Dosage: 1 DF (500 UNK UNITS), QD
     Dates: start: 201201
  5. SELOKEN ZOC [Concomitant]
     Indication: HYPERTENSION
     Dosage: 1 DF, BID
     Dates: start: 201111

REACTIONS (3)
  - Death [Fatal]
  - Uveitis [Unknown]
  - Pain [Unknown]
